FAERS Safety Report 5702736-9 (Version None)
Quarter: 2008Q2

REPORT INFORMATION
  Report Type: 
  Country: None (occurrence: None)
  Receive Date: 20080411
  Receipt Date: 20080407
  Transmission Date: 20081010
  Serious: Yes (Hospitalization)
  Sender: FDA-Public Use
  Company Number: B0507095A

PATIENT
  Age: 83 Year
  Sex: Female
  Weight: 40 kg

DRUGS (17)
  1. ARIXTRA [Suspect]
     Indication: THROMBOSIS PROPHYLAXIS
     Dosage: 1.5MG PER DAY
     Route: 058
     Dates: start: 20071123, end: 20071127
  2. PANSPORIN [Suspect]
     Dosage: 1MG TWICE PER DAY
     Route: 042
     Dates: start: 20071122, end: 20071124
  3. FLOMAX [Suspect]
     Indication: DRUG USE FOR UNKNOWN INDICATION
     Dosage: 100MG THREE TIMES PER DAY
     Route: 048
     Dates: start: 20071125, end: 20071129
  4. VOLTAREN [Suspect]
  5. WARFARIN SODIUM [Concomitant]
     Dosage: 1MG PER DAY
     Route: 048
     Dates: start: 20071113
  6. WARFARIN SODIUM [Concomitant]
     Dosage: 1.5MG PER DAY
     Route: 048
     Dates: start: 20071127, end: 20071226
  7. WARFARIN SODIUM [Concomitant]
     Dosage: 2MG PER DAY
     Route: 048
     Dates: start: 20071227
  8. DIGOXIN [Concomitant]
     Dosage: .125MG PER DAY
     Route: 048
  9. TORSEMIDE [Concomitant]
     Dosage: 8MG PER DAY
     Route: 048
     Dates: end: 20071217
  10. FUROSEMIDE [Concomitant]
     Dosage: 40MG PER DAY
     Route: 048
     Dates: start: 20071218
  11. ADALAT [Concomitant]
     Dosage: 40MG PER DAY
     Route: 048
     Dates: end: 20071226
  12. NU-LOTAN [Concomitant]
     Dosage: 50MG PER DAY
     Route: 048
     Dates: start: 20071227
  13. PARIET [Concomitant]
     Dosage: 20MG PER DAY
     Route: 048
  14. UNKNOWN DRUG [Concomitant]
     Dosage: 400MG PER DAY
     Route: 048
     Dates: end: 20071214
  15. VESICARE [Concomitant]
     Dosage: 5MG PER DAY
     Route: 048
     Dates: start: 20071127, end: 20071214
  16. GASTER D [Concomitant]
     Dosage: 40MG PER DAY
     Route: 048
     Dates: start: 20071119, end: 20071205
  17. BLOOD TRANSFUSION [Concomitant]

REACTIONS (10)
  - ASCITES [None]
  - BLOOD ALBUMIN DECREASED [None]
  - BLOOD CREATININE INCREASED [None]
  - BLOOD POTASSIUM INCREASED [None]
  - BLOOD SODIUM DECREASED [None]
  - BLOOD UREA INCREASED [None]
  - C-REACTIVE PROTEIN INCREASED [None]
  - NEPHROTIC SYNDROME [None]
  - PLEURAL EFFUSION [None]
  - PROTEIN TOTAL DECREASED [None]
